FAERS Safety Report 24181622 (Version 2)
Quarter: 2025Q1

REPORT INFORMATION
  Report Type: Report from Study
  Country: CA (occurrence: CA)
  Receive Date: 20240807
  Receipt Date: 20250316
  Transmission Date: 20250408
  Serious: Yes (Hospitalization, Other)
  Sender: AUROBINDO
  Company Number: CA-AUROBINDO-AUR-APL-2024-039318

PATIENT
  Age: 38 Year
  Sex: Male

DRUGS (3)
  1. AMOXICILLIN\CLAVULANIC ACID [Suspect]
     Active Substance: AMOXICILLIN\CLAVULANIC ACID
     Indication: Bacterial infection
     Route: 048
  2. CEFTRIAXONE [Suspect]
     Active Substance: CEFTRIAXONE
     Indication: Bacterial infection
     Route: 042
  3. KEFLEX [Suspect]
     Active Substance: CEPHALEXIN
     Indication: Bacterial infection
     Route: 048

REACTIONS (2)
  - Therapy non-responder [Unknown]
  - Disease progression [Unknown]

NARRATIVE: CASE EVENT DATE: 20201019
